FAERS Safety Report 10032875 (Version 8)
Quarter: 2015Q1

REPORT INFORMATION
  Report Type: Report from Study
  Country: US (occurrence: US)
  Receive Date: 20140324
  Receipt Date: 20150316
  Transmission Date: 20150720
  Serious: Yes (Other)
  Sender: FDA-Public Use
  Company Number: US-SA-2014SA009755

PATIENT
  Age: 60 Year
  Sex: Female

DRUGS (2)
  1. AUBAGIO [Suspect]
     Active Substance: TERIFLUNOMIDE
     Indication: MULTIPLE SCLEROSIS
     Route: 048
     Dates: start: 20131122
  2. AUBAGIO [Suspect]
     Active Substance: TERIFLUNOMIDE
     Indication: MULTIPLE SCLEROSIS
     Route: 048
     Dates: start: 20131205, end: 20141220

REACTIONS (17)
  - Product packaging issue [Unknown]
  - Dyspnoea [Unknown]
  - Balance disorder [Unknown]
  - Bursitis [Unknown]
  - Malaise [Unknown]
  - Cough [Not Recovered/Not Resolved]
  - White blood cell count decreased [Unknown]
  - Ulcer [Unknown]
  - Inflammation [Unknown]
  - Fatigue [Unknown]
  - Diarrhoea [Unknown]
  - Nuclear magnetic resonance imaging abnormal [Unknown]
  - Alopecia [Unknown]
  - Drug ineffective [Unknown]
  - Erythema [Unknown]
  - Change of bowel habit [Unknown]
  - Asthenia [Unknown]

NARRATIVE: CASE EVENT DATE: 2014
